FAERS Safety Report 15094861 (Version 3)
Quarter: 2018Q3

REPORT INFORMATION
  Report Type: Spontaneous
  Country: NL (occurrence: NL)
  Receive Date: 20180701
  Receipt Date: 20180702
  Transmission Date: 20181010
  Serious: Yes (Other)
  Sender: FDA-Public Use
  Company Number: PHHY2018NL031314

PATIENT
  Age: 56 Year
  Sex: Male

DRUGS (1)
  1. DICLOFENAC [Suspect]
     Active Substance: DICLOFENAC
     Indication: CONTUSION
     Dosage: 50 MG, TID
     Route: 048

REACTIONS (3)
  - Anaphylactic reaction [Unknown]
  - Abdominal pain [Unknown]
  - Hyperhidrosis [Unknown]
